FAERS Safety Report 7888907-4 (Version None)
Quarter: 2011Q4

REPORT INFORMATION
  Report Type: 
  Country: None (occurrence: None)
  Receive Date: 20111101
  Receipt Date: 20111101
  Transmission Date: 20120403
  Serious: Yes (Other)
  Sender: FDA-Public Use
  Company Number: None

PATIENT
  Sex: Male
  Weight: 63.6 kg

DRUGS (2)
  1. DEPAKOTE [Suspect]
     Indication: EPILEPSY
     Dosage: 3 BID PO
     Route: 048
     Dates: start: 19980812
  2. DEPAKOTE [Suspect]
     Indication: LENNOX-GASTAUT SYNDROME
     Dosage: 3 BID PO
     Route: 048
     Dates: start: 19980812

REACTIONS (2)
  - CONVULSION [None]
  - PRODUCT SUBSTITUTION ISSUE [None]
